FAERS Safety Report 10044973 (Version 1)
Quarter: 2014Q1

REPORT INFORMATION
  Report Type: Spontaneous
  Country: GB (occurrence: GB)
  Receive Date: 20140328
  Receipt Date: 20140328
  Transmission Date: 20141002
  Serious: Yes (Death)
  Sender: FDA-Public Use
  Company Number: GB-OTSUKA-EU-2014-10078

PATIENT
  Age: 70 Year
  Sex: Female

DRUGS (1)
  1. SAMSCA [Suspect]
     Indication: PRODUCT USED FOR UNKNOWN INDICATION
     Dosage: 7.5 MG MILLIGRAM(S), UNKNOWN
     Route: 048

REACTIONS (2)
  - Death [Fatal]
  - Wrong technique in drug usage process [Unknown]
